FAERS Safety Report 8388714-2 (Version None)
Quarter: 2012Q2

REPORT INFORMATION
  Report Type: 
  Country: None (occurrence: None)
  Receive Date: 20120527
  Receipt Date: 20120501
  Transmission Date: 20120825
  Serious: No
  Sender: FDA-Public Use
  Company Number: US-BAYER-2012-047661

PATIENT
  Age: 73 Year
  Sex: Female
  Weight: 82 kg

DRUGS (3)
  1. NAPROXEN SODIUM [Suspect]
     Indication: ANALGESIC THERAPY
     Dosage: UNK UNK, PRN
     Route: 048
  2. NAPROXEN SODIUM [Suspect]
     Dosage: UNK
     Route: 048
  3. HERBALIFE PRODUCTS [Concomitant]

REACTIONS (2)
  - NO ADVERSE EVENT [None]
  - ABDOMINAL PAIN UPPER [None]
